FAERS Safety Report 21875657 (Version 1)
Quarter: 2023Q1

REPORT INFORMATION
  Report Type: Spontaneous
  Country: US (occurrence: US)
  Receive Date: 20230118
  Receipt Date: 20230118
  Transmission Date: 20230418
  Serious: Yes (Other)
  Sender: FDA-Public Use
  Company Number: US-drreddys-SPO/USA/23/0159953

PATIENT
  Age: 57 Year
  Sex: Male

DRUGS (4)
  1. LORAZEPAM [Suspect]
     Active Substance: LORAZEPAM
     Indication: Catatonia
     Dosage: UNKNOWN DOSE
  2. LORAZEPAM [Suspect]
     Active Substance: LORAZEPAM
     Dosage: TITRATED TO A DAILY DOSE OF LORAZEPAM 6 MG
  3. LURASIDONE [Concomitant]
     Active Substance: LURASIDONE
     Indication: Bipolar I disorder
  4. LURASIDONE [Concomitant]
     Active Substance: LURASIDONE
     Indication: Catatonia

REACTIONS (3)
  - Drug intolerance [Recovered/Resolved]
  - Bradycardia [Recovered/Resolved]
  - Product use in unapproved indication [Unknown]
